FAERS Safety Report 15459027 (Version 2)
Quarter: 2018Q4

REPORT INFORMATION
  Report Type: Report from Study
  Country: CA (occurrence: CA)
  Receive Date: 20181003
  Receipt Date: 20181212
  Transmission Date: 20190204
  Serious: Yes (Hospitalization, Other)
  Sender: FDA-Public Use
  Company Number: PHHY2018CA086466

PATIENT
  Sex: Female

DRUGS (4)
  1. TAFINLAR [Suspect]
     Active Substance: DABRAFENIB MESYLATE
     Dosage: 200 MG, UNK
     Route: 048
     Dates: start: 20180725
  2. MEKINIST [Suspect]
     Active Substance: TRAMETINIB DIMETHYL SULFOXIDE
     Indication: METASTATIC MALIGNANT MELANOMA
     Dosage: 2 MG, UNK
     Route: 048
     Dates: start: 20180725, end: 20181130
  3. TAFINLAR [Suspect]
     Active Substance: DABRAFENIB MESYLATE
     Indication: METASTATIC MALIGNANT MELANOMA
     Dosage: 300 MG, UNK
     Route: 048
     Dates: start: 20180725, end: 20180820
  4. TAFINLAR [Suspect]
     Active Substance: DABRAFENIB MESYLATE
     Dosage: 300 MG (STRENGTH 75 MG), UNK
     Route: 048
     Dates: start: 20180921, end: 20181130

REACTIONS (6)
  - Drug intolerance [Unknown]
  - Malaise [Unknown]
  - Asthenia [Unknown]
  - Incorrect dose administered [Unknown]
  - Pyrexia [Not Recovered/Not Resolved]
  - Cellulitis [Unknown]

NARRATIVE: CASE EVENT DATE: 2018
